FAERS Safety Report 11748757 (Version 2)
Quarter: 2016Q3

REPORT INFORMATION
  Report Type: Spontaneous
  Country: US (occurrence: US)
  Receive Date: 20151118
  Receipt Date: 20160722
  Transmission Date: 20161109
  Serious: No
  Sender: FDA-Public Use
  Company Number: US-GLENMARK PHARMACEUTICALS INC, USA.-2015GMK020333

PATIENT

DRUGS (1)
  1. MUPIROCIN. [Suspect]
     Active Substance: MUPIROCIN
     Indication: ROSACEA
     Dosage: UNK, WAS ADVISED TO APPLY 3 TIMES DAILY
     Route: 065

REACTIONS (3)
  - Application site pain [Unknown]
  - Application site pruritus [Unknown]
  - Off label use [Unknown]
